FAERS Safety Report 15482054 (Version 2)
Quarter: 2019Q2

REPORT INFORMATION
  Report Type: Spontaneous
  Country: US (occurrence: US)
  Receive Date: 20181010
  Receipt Date: 20190627
  Transmission Date: 20190711
  Serious: Yes (Other)
  Sender: FDA-Public Use
  Company Number: US-CLOVIS ONCOLOGY-CLO-2018-001381

PATIENT
  Age: 77 Year
  Sex: Female

DRUGS (7)
  1. RUBRACA [Suspect]
     Active Substance: RUCAPARIB CAMSYLATE
     Indication: OVARIAN CANCER
     Dosage: 600 MG, BID
     Route: 048
     Dates: start: 201806
  2. RUBRACA [Suspect]
     Active Substance: RUCAPARIB CAMSYLATE
     Dosage: 2 TABLETS IN AM, 2 TABLETS IN PM
     Route: 048
     Dates: start: 20190614
  3. RUBRACA [Suspect]
     Active Substance: RUCAPARIB CAMSYLATE
     Dosage: 300 MG, BID
     Route: 048
     Dates: end: 20190417
  4. RUBRACA [Suspect]
     Active Substance: RUCAPARIB CAMSYLATE
     Indication: OVARIAN CANCER
     Dosage: 600 MG, BID
     Route: 048
     Dates: start: 20180604, end: 20190605
  5. RUBRACA [Suspect]
     Active Substance: RUCAPARIB CAMSYLATE
     Dosage: 300 MG IN AM/600 MG IN PM
     Route: 048
     Dates: start: 20190319, end: 2019
  6. RUBRACA [Suspect]
     Active Substance: RUCAPARIB CAMSYLATE
     Dosage: 600 MG, BID
     Route: 048
     Dates: start: 20190417
  7. LORAZEPAM. [Concomitant]
     Active Substance: LORAZEPAM
     Indication: INSOMNIA

REACTIONS (15)
  - Pain of skin [Unknown]
  - Bone pain [Unknown]
  - Urinary tract pain [Unknown]
  - Gastric disorder [Unknown]
  - Tremor [Unknown]
  - Carbohydrate antigen 125 increased [Unknown]
  - Nausea [Unknown]
  - Dizziness [Unknown]
  - Gait disturbance [Unknown]
  - Dyskinesia [Unknown]
  - Fatigue [Unknown]
  - Pruritus [Unknown]
  - Neuropathy peripheral [Unknown]
  - Platelet count decreased [Unknown]
  - Asthenia [Not Recovered/Not Resolved]

NARRATIVE: CASE EVENT DATE: 2018
